FAERS Safety Report 25785634 (Version 2)
Quarter: 2025Q4

REPORT INFORMATION
  Report Type: Report from Study
  Country: GB (occurrence: GB)
  Receive Date: 20250910
  Receipt Date: 20251103
  Transmission Date: 20260118
  Serious: Yes (Other)
  Sender: IPSEN BIOPHARMACEUTICALS, INC.
  Company Number: GB-IPSEN Group, Research and Development-2025-08913

PATIENT
  Age: 89 Year
  Sex: Male

DRUGS (2)
  1. LANREOTIDE ACETATE [Suspect]
     Active Substance: LANREOTIDE ACETATE
     Indication: Neuroendocrine tumour
     Dosage: RIGHT UPPER OUTER QUADRANT OF BUTTOCKS??BATCH NO: 0193665?EXPIRY DATE:03/2028, DEC-2027
     Dates: start: 20250416
  2. LANREOTIDE ACETATE [Suspect]
     Active Substance: LANREOTIDE ACETATE
     Indication: Neoplasm malignant

REACTIONS (7)
  - Cellulitis [Not Recovered/Not Resolved]
  - Diarrhoea [Recovered/Resolved]
  - Diarrhoea [Recovered/Resolved]
  - Injection site discomfort [Recovered/Resolved]
  - Diarrhoea [Recovered/Resolved]
  - Chest pain [Unknown]
  - Nausea [Recovering/Resolving]

NARRATIVE: CASE EVENT DATE: 20250417
